FAERS Safety Report 9828252 (Version 1)
Quarter: 2014Q1

REPORT INFORMATION
  Report Type: Spontaneous
  Country: US (occurrence: US)
  Receive Date: 20140117
  Receipt Date: 20140117
  Transmission Date: 20141002
  Serious: Yes (Other)
  Sender: FDA-Public Use
  Company Number: US-PFIZER INC-2014014332

PATIENT
  Age: 79 Year
  Sex: Female
  Weight: 65.76 kg

DRUGS (7)
  1. CELEBREX [Suspect]
     Indication: ARTHRALGIA
     Dosage: 500 MG, 2X/DAY
     Route: 048
  2. MORPHINE [Concomitant]
     Dosage: 15 MG, 2X/DAY
  3. SYMBICORT [Concomitant]
     Indication: BRONCHITIS CHRONIC
     Dosage: UNK, 2X/DAY
  4. SYMBICORT [Concomitant]
     Indication: ASTHMA
  5. RESTASIS [Concomitant]
     Indication: GLAUCOMA
     Dosage: UNK, 2X/DAY
  6. OASIS TEARS [Concomitant]
     Indication: DRY EYE
     Dosage: UNK, 1X/DAY
  7. OMEPRAZOLE [Concomitant]
     Indication: GASTROOESOPHAGEAL REFLUX DISEASE
     Dosage: 20 MG, 2X/DAY

REACTIONS (2)
  - Arthritis [Unknown]
  - Blood glucose increased [Unknown]
